FAERS Safety Report 6880269-4 (Version None)
Quarter: 2010Q3

REPORT INFORMATION
  Report Type: 
  Country: None (occurrence: None)
  Receive Date: 20100728
  Receipt Date: 20100721
  Transmission Date: 20110219
  Serious: Yes (Hospitalization)
  Sender: FDA-Public Use
  Company Number: US-AMGEN-KDC426028

PATIENT
  Weight: 2.77 kg

DRUGS (10)
  1. ENBREL [Suspect]
     Route: 064
     Dates: start: 20090926, end: 20100611
  2. ACETAMINOPHEN [Concomitant]
     Route: 064
     Dates: start: 20090926, end: 20100611
  3. INFLUENZA A (H1N1) MONOVALENT VACCINE [Concomitant]
     Route: 064
     Dates: start: 20091022, end: 20091022
  4. TAMIFLU [Concomitant]
     Route: 064
     Dates: start: 20091028, end: 20091106
  5. PRENATAL VITAMINS [Concomitant]
     Route: 064
     Dates: start: 20090926, end: 20100611
  6. FOLIC ACID [Concomitant]
     Route: 064
     Dates: start: 20090926, end: 20100611
  7. IRON [Concomitant]
     Route: 064
     Dates: start: 20100510, end: 20100611
  8. RHOGAM [Concomitant]
     Route: 064
     Dates: start: 20091022, end: 20091022
  9. EVENING PRIMROSE OIL [Concomitant]
     Route: 064
     Dates: start: 20100609, end: 20100611
  10. INFLUENZA VACCINE [Concomitant]

REACTIONS (2)
  - JAUNDICE NEONATAL [None]
  - PREMATURE BABY [None]
